FAERS Safety Report 7790512-5 (Version None)
Quarter: 2011Q3

REPORT INFORMATION
  Report Type: 
  Country: None (occurrence: None)
  Receive Date: 20110930
  Receipt Date: 20110921
  Transmission Date: 20111222
  Serious: Yes (Hospitalization)
  Sender: FDA-Public Use
  Company Number: SE-JNJFOC-20110908788

PATIENT
  Sex: Female

DRUGS (7)
  1. AMILORIDE HCL AND HYDROCHLOROTHIAZIDE [Concomitant]
     Route: 048
  2. LYRICA [Suspect]
     Indication: DEPRESSION
     Route: 048
     Dates: start: 20091217, end: 20100101
  3. DICLOFENAC [Suspect]
     Indication: PRODUCT USED FOR UNKNOWN INDICATION
     Dates: start: 20091001, end: 20091001
  4. AMITRIPTYLINE HCL [Suspect]
     Indication: DEPRESSION
     Route: 048
     Dates: start: 20100105, end: 20100201
  5. SIMVASTATIN [Concomitant]
  6. IBUPROFEN [Suspect]
     Indication: PRODUCT USED FOR UNKNOWN INDICATION
     Route: 048
     Dates: start: 20091001, end: 20091001
  7. PLENDIL [Concomitant]
     Route: 048

REACTIONS (1)
  - PULMONARY FIBROSIS [None]
